FAERS Safety Report 8865551 (Version 1)
Quarter: 2012Q4

REPORT INFORMATION
  Report Type: 
  Country: US (occurrence: US)
  Receive Date: 20121024
  Receipt Date: 20121024
  Transmission Date: 20130627
  Serious: No
  Sender: FDA-Public Use
  Company Number: US-AMGEN-USASP2012003555

PATIENT
  Sex: Female
  Weight: 49.43 kg

DRUGS (6)
  1. ENBREL [Suspect]
     Indication: PRODUCT USED FOR UNKNOWN INDICATION
     Dosage: 50 mg, qwk
  2. PREMARIN [Concomitant]
     Dosage: 0.3 mg, UNK
  3. SIMVASTATIN [Concomitant]
     Dosage: 10 mg, UNK
  4. TRIAMTEREEN/HYDROCHLOORTHIAZIDE A [Concomitant]
     Dosage: 75 mg, UNK
  5. METOPROLOL [Concomitant]
     Dosage: 200 mg, UNK
  6. ACYCLOVIR                          /00587301/ [Concomitant]
     Dosage: 500 mg, UNK

REACTIONS (1)
  - Headache [Unknown]
